FAERS Safety Report 7750041-1 (Version None)
Quarter: 2011Q3

REPORT INFORMATION
  Report Type: 
  Country: None (occurrence: None)
  Receive Date: 20110914
  Receipt Date: 20110909
  Transmission Date: 20111222
  Serious: Yes (Death)
  Sender: FDA-Public Use
  Company Number: JP-SANOFI-AVENTIS-2011SA035343

PATIENT
  Age: 71 Year
  Sex: Male
  Weight: 49.9 kg

DRUGS (7)
  1. TAXOTERE [Suspect]
     Indication: OESOPHAGEAL CARCINOMA
     Route: 051
     Dates: start: 20110525, end: 20110525
  2. OMEPRAZOLE [Concomitant]
     Route: 048
  3. CONIEL [Concomitant]
     Route: 048
  4. EFUDEX [Concomitant]
     Indication: OESOPHAGEAL CARCINOMA
     Dosage: FREQUENCY:5
     Route: 042
     Dates: start: 20110525, end: 20110530
  5. ASPIRIN [Concomitant]
     Route: 048
  6. CISPLATIN [Concomitant]
     Indication: OESOPHAGEAL CARCINOMA
     Route: 042
     Dates: start: 20110525, end: 20110525
  7. MICARDIS [Concomitant]
     Route: 048

REACTIONS (4)
  - ENTERITIS INFECTIOUS [None]
  - DIARRHOEA [None]
  - BONE MARROW FAILURE [None]
  - FEBRILE NEUTROPENIA [None]
